FAERS Safety Report 9468156 (Version 1)
Quarter: 2013Q3

REPORT INFORMATION
  Report Type: Spontaneous
  Country: US (occurrence: US)
  Receive Date: 20130821
  Receipt Date: 20130821
  Transmission Date: 20140515
  Serious: Yes (Other)
  Sender: FDA-Public Use
  Company Number: US-FRI-1000047923

PATIENT
  Age: 77 Year
  Sex: Female

DRUGS (3)
  1. LINZESS [Suspect]
     Indication: ABDOMINAL PAIN UPPER
     Dosage: 290 MCG
     Route: 048
     Dates: start: 20130814, end: 20130814
  2. ASPIRIN [Concomitant]
  3. KLOR-CON [Concomitant]

REACTIONS (3)
  - Haematochezia [Not Recovered/Not Resolved]
  - Diarrhoea [Not Recovered/Not Resolved]
  - Off label use [Recovered/Resolved]
